FAERS Safety Report 18972539 (Version 3)
Quarter: 2021Q2

REPORT INFORMATION
  Report Type: Other
  Country: US (occurrence: US)
  Receive Date: 20210305
  Receipt Date: 20210416
  Transmission Date: 20210717
  Serious: Yes (Hospitalization)
  Sender: FDA-Public Use
  Company Number: US-ROCHE-2728521

PATIENT
  Sex: Female

DRUGS (6)
  1. ALBUTEROL. [Concomitant]
     Active Substance: ALBUTEROL
  2. PULMOZYME [Suspect]
     Active Substance: DORNASE ALFA
     Indication: RESPIRATORY TRACT MALFORMATION
     Dosage: (FORM OF ADMIN: 1 MG/ ML INHALATION SOLUTION) INHALE 2.5 MG ONCE DAILY
     Route: 045
     Dates: start: 20201017
  3. AMLODIPINE [Concomitant]
     Active Substance: AMLODIPINE BESYLATE
  4. FLUTICASONE PROPIONATE. [Concomitant]
     Active Substance: FLUTICASONE PROPIONATE
  5. PULMOZYME [Suspect]
     Active Substance: DORNASE ALFA
     Indication: PULMONARY EMBOLISM
     Dosage: NEBULIZE THE CONTENTS OF 1 VIAL(S) ONCE DAILY?FORMULATION: AMPUL
     Route: 045
  6. BUDESONIDE. [Concomitant]
     Active Substance: BUDESONIDE

REACTIONS (3)
  - Lung disorder [Unknown]
  - Off label use [Unknown]
  - Intentional product use issue [Unknown]
